FAERS Safety Report 14223646 (Version 4)
Quarter: 2018Q1

REPORT INFORMATION
  Report Type: Report from Study
  Country: CA (occurrence: CA)
  Receive Date: 20171124
  Receipt Date: 20180111
  Transmission Date: 20180508
  Serious: Yes (Other)
  Sender: FDA-Public Use
  Company Number: PHHY2017CA172658

PATIENT
  Sex: Female

DRUGS (3)
  1. SYNTHROID [Concomitant]
     Active Substance: LEVOTHYROXINE SODIUM
     Indication: PRODUCT USED FOR UNKNOWN INDICATION
     Route: 065
  2. IRON [Concomitant]
     Active Substance: IRON
     Indication: PRODUCT USED FOR UNKNOWN INDICATION
     Route: 065
  3. GILENYA [Suspect]
     Active Substance: FINGOLIMOD HYDROCHLORIDE
     Indication: PRODUCT USED FOR UNKNOWN INDICATION
     Dosage: UNK
     Route: 048
     Dates: start: 20161220

REACTIONS (18)
  - Depressed mood [Unknown]
  - Nasopharyngitis [Unknown]
  - Expanded disability status scale [Unknown]
  - Alopecia [Unknown]
  - Nausea [Unknown]
  - Syncope [Unknown]
  - Tachycardia [Recovering/Resolving]
  - Dizziness [Unknown]
  - Tremor [Unknown]
  - Neuritis [Unknown]
  - Throat irritation [Unknown]
  - Onychoclasis [Unknown]
  - Suicidal ideation [Unknown]
  - Pruritus [Unknown]
  - Disease recurrence [Unknown]
  - Fatigue [Unknown]
  - Scratch [Unknown]
  - Headache [Unknown]

NARRATIVE: CASE EVENT DATE: 2017
